FAERS Safety Report 4562962-1 (Version None)
Quarter: 2005Q1

REPORT INFORMATION
  Report Type: 
  Country: None (occurrence: None)
  Receive Date: 20050121
  Receipt Date: 20041227
  Transmission Date: 20050727
  Serious: Yes (Hospitalization)
  Sender: FDA-Public Use
  Company Number: JP_050105563

PATIENT
  Age: 50 Year
  Sex: Male
  Weight: 73 kg

DRUGS (11)
  1. GEMZAR [Suspect]
     Indication: PANCREATIC CARCINOMA
     Dosage: 1400 MG OTHER
     Dates: start: 20030904, end: 20030911
  2. PRAVASTATIN [Concomitant]
  3. ENALAPRIL MALEATE [Concomitant]
  4. DIOVAN [Concomitant]
  5. FLUITRAN (TRICHLORMETHIAZIDE) [Concomitant]
  6. ALLOPURINOL [Concomitant]
  7. AMLODIPINE BESYLATE [Concomitant]
  8. MORPHINE SULFATE [Concomitant]
  9. PRIMPERAN ELIXIR [Concomitant]
  10. MAGNESIUM OXIDE [Concomitant]
  11. RADIOTHERAPY [Concomitant]

REACTIONS (4)
  - APHAGIA [None]
  - DISEASE PROGRESSION [None]
  - OESOPHAGITIS [None]
  - RADIATION OESOPHAGITIS [None]
